FAERS Safety Report 8677912 (Version 5)
Quarter: 2018Q3

REPORT INFORMATION
  Report Type: Report from Study
  Country: JP (occurrence: JP)
  Receive Date: 20120723
  Receipt Date: 20180816
  Transmission Date: 20181010
  Serious: Yes (Other)
  Sender: FDA-Public Use
  Company Number: JP-ROCHE-1088369

PATIENT
  Age: 84 Year
  Sex: Male
  Weight: 63 kg

DRUGS (15)
  1. RANIBIZUMAB. [Suspect]
     Active Substance: RANIBIZUMAB
     Dosage: REGIMEN 3
     Route: 031
     Dates: start: 20091117
  2. RANIBIZUMAB. [Suspect]
     Active Substance: RANIBIZUMAB
     Dosage: REGIMEN 5
     Route: 031
     Dates: start: 20091110
  3. RANIBIZUMAB. [Suspect]
     Active Substance: RANIBIZUMAB
     Dosage: REGIMEN 5
     Route: 031
     Dates: start: 20100414, end: 20100414
  4. RANIBIZUMAB. [Suspect]
     Active Substance: RANIBIZUMAB
     Dosage: REGIMEN 5
     Route: 031
     Dates: start: 20100218
  5. VIGAMOX [Concomitant]
     Active Substance: MOXIFLOXACIN HYDROCHLORIDE
     Route: 057
     Dates: start: 200904
  6. VIGAMOX [Concomitant]
     Active Substance: MOXIFLOXACIN HYDROCHLORIDE
     Route: 057
     Dates: start: 200911
  7. RANIBIZUMAB. [Suspect]
     Active Substance: RANIBIZUMAB
     Indication: AGE-RELATED MACULAR DEGENERATION
     Dosage: REGIMEN 1
     Route: 031
     Dates: start: 20090421
  8. RANIBIZUMAB. [Suspect]
     Active Substance: RANIBIZUMAB
     Dosage: REGIMEN 4
     Route: 031
     Dates: start: 20100119
  9. VERTEPORFIN [Suspect]
     Active Substance: VERTEPORFIN
     Indication: AGE-RELATED MACULAR DEGENERATION
     Route: 042
     Dates: start: 20081205
  10. VIGAMOX [Concomitant]
     Active Substance: MOXIFLOXACIN HYDROCHLORIDE
     Route: 057
     Dates: start: 201001
  11. VERTEPORFIN [Suspect]
     Active Substance: VERTEPORFIN
     Dosage: REGIMEN: 2
     Route: 042
     Dates: start: 20090428, end: 20090428
  12. VIGAMOX [Concomitant]
     Active Substance: MOXIFLOXACIN HYDROCHLORIDE
     Route: 057
     Dates: start: 200905
  13. AVASTIN [Concomitant]
     Active Substance: BEVACIZUMAB
     Route: 050
     Dates: start: 20081118
  14. RANIBIZUMAB. [Suspect]
     Active Substance: RANIBIZUMAB
     Dosage: REGIMEN 2
     Route: 031
     Dates: start: 20090519
  15. VIGAMOX [Concomitant]
     Active Substance: MOXIFLOXACIN HYDROCHLORIDE
     Route: 057
     Dates: start: 201004, end: 201004

REACTIONS (2)
  - Retinal pigment epithelial tear [Not Recovered/Not Resolved]
  - Detachment of retinal pigment epithelium [Unknown]

NARRATIVE: CASE EVENT DATE: 20090106
